FAERS Safety Report 5471639-X (Version None)
Quarter: 2007Q3

REPORT INFORMATION
  Report Type: 
  Country: None (occurrence: None)
  Receive Date: 20070928
  Receipt Date: 20070223
  Transmission Date: 20080115
  Serious: No
  Sender: FDA-Public Use
  Company Number: US-BRISTOL-MYERS SQUIBB COMPANY-13691639

PATIENT
  Age: 42 Year
  Sex: Female
  Weight: 124 kg

DRUGS (1)
  1. DEFINITY [Suspect]
     Indication: CARDIAC VENTRICULAR DISORDER
     Dosage: DEFINITY 4.0CC(DILUTED WITH SALINE).
     Dates: start: 20070223, end: 20070223

REACTIONS (2)
  - ARTHRALGIA [None]
  - BACK PAIN [None]
